FAERS Safety Report 9336459 (Version 1)
Quarter: 2013Q2

REPORT INFORMATION
  Report Type: Spontaneous
  Country: JP (occurrence: JP)
  Receive Date: 20130607
  Receipt Date: 20130607
  Transmission Date: 20140414
  Serious: Yes (Other)
  Sender: FDA-Public Use
  Company Number: JP-GENZYME-THYM-1003851

PATIENT
  Age: 45 Year
  Sex: Male

DRUGS (6)
  1. THYMOGLOBULINE [Suspect]
     Indication: APLASTIC ANAEMIA
     Dosage: UNK
     Route: 065
  2. FLUDARA [Suspect]
     Indication: BONE MARROW CONDITIONING REGIMEN
     Dosage: UNK
     Route: 065
  3. CYCLOSPORIN A [Concomitant]
     Indication: APLASTIC ANAEMIA
     Dosage: UNK
     Route: 065
  4. G-CSF [Concomitant]
     Indication: APLASTIC ANAEMIA
     Dosage: UNK
     Route: 065
  5. TOTAL BODY IRRADIATION [Concomitant]
     Indication: BONE MARROW CONDITIONING REGIMEN
     Dosage: UNK
     Route: 065
  6. CYCLOPHOSPHAMIDE [Concomitant]
     Indication: BONE MARROW CONDITIONING REGIMEN
     Dosage: UNK
     Route: 065

REACTIONS (3)
  - Cytomegalovirus infection [Unknown]
  - Febrile neutropenia [Unknown]
  - Lymphoproliferative disorder [Recovered/Resolved]
